FAERS Safety Report 6109198-0 (Version None)
Quarter: 2009Q1

REPORT INFORMATION
  Report Type: 
  Country: None (occurrence: None)
  Receive Date: 20090310
  Receipt Date: 20090226
  Transmission Date: 20090719
  Serious: Yes (Other)
  Sender: FDA-Public Use
  Company Number: PHHY2009NO08127

PATIENT
  Sex: Male

DRUGS (1)
  1. RITALIN [Suspect]
     Route: 042

REACTIONS (3)
  - EUPHORIC MOOD [None]
  - INTENTIONAL DRUG MISUSE [None]
  - WRONG TECHNIQUE IN DRUG USAGE PROCESS [None]
